FAERS Safety Report 24257041 (Version 1)
Quarter: 2024Q3

REPORT INFORMATION
  Report Type: Spontaneous
  Country: GB (occurrence: GB)
  Receive Date: 20240828
  Receipt Date: 20240828
  Transmission Date: 20241017
  Serious: Yes (Hospitalization)
  Sender: TEVA
  Company Number: None

PATIENT
  Age: 81 Year
  Sex: Male

DRUGS (10)
  1. DOXYCYCLINE [Suspect]
     Active Substance: DOXYCYCLINE\DOXYCYCLINE HYCLATE
     Indication: Antibiotic therapy
     Route: 065
     Dates: start: 20240713
  2. PROCHLORPERAZINE [Concomitant]
     Active Substance: PROCHLORPERAZINE
  3. FOLIC ACID [Concomitant]
     Active Substance: FOLIC ACID
  4. DIORALYTE [Concomitant]
     Active Substance: CITRIC ACID MONOHYDRATE\DEXTROSE\POTASSIUM CATION\SODIUM CHLORIDE
  5. OMEPRAZOLE [Concomitant]
     Active Substance: OMEPRAZOLE
  6. BECLOMETHASONE [Concomitant]
     Active Substance: BECLOMETHASONE
  7. ALBUTEROL [Concomitant]
     Active Substance: ALBUTEROL
  8. NAPROXEN [Concomitant]
     Active Substance: NAPROXEN
  9. SIMVASTATIN [Concomitant]
     Active Substance: SIMVASTATIN
  10. IBUPROFEN [Concomitant]
     Active Substance: IBUPROFEN

REACTIONS (3)
  - Abdominal discomfort [Recovering/Resolving]
  - Vomiting [Recovering/Resolving]
  - Diarrhoea [Recovering/Resolving]

NARRATIVE: CASE EVENT DATE: 20240819
